FAERS Safety Report 8965958 (Version 1)
Quarter: 2012Q4

REPORT INFORMATION
  Report Type: 
  Country: BR (occurrence: BR)
  Receive Date: 20121217
  Receipt Date: 20121217
  Transmission Date: 20130627
  Serious: Yes (Other)
  Sender: FDA-Public Use
  Company Number: PHHY2012BR115349

PATIENT

DRUGS (3)
  1. ONBREZ [Suspect]
     Dosage: 150 mg, daily
     Dates: start: 20121128
  2. FORASEQ [Suspect]
     Dosage: 12/400 mcg 2 DF daily
     Dates: end: 20121128
  3. MOMETASONE FUROATE [Suspect]
     Dosage: UNK UKN, UNK

REACTIONS (1)
  - Ischaemia [Recovering/Resolving]
